FAERS Safety Report 12639804 (Version 1)
Quarter: 2016Q3

REPORT INFORMATION
  Report Type: Spontaneous
  Country: US (occurrence: None)
  Receive Date: 20160809
  Receipt Date: 20160809
  Transmission Date: 20161109
  Serious: No
  Sender: FDA-Public Use
  Company Number: None

PATIENT
  Age: 79 Year
  Sex: Female
  Weight: 38.56 kg

DRUGS (9)
  1. MIRALAX [Concomitant]
     Active Substance: POLYETHYLENE GLYCOL 3350
  2. RECLAST [Suspect]
     Active Substance: ZOLEDRONIC ACID
     Indication: OSTEOPOROSIS
     Dates: start: 20110712
  3. SYNTHROID [Concomitant]
     Active Substance: LEVOTHYROXINE SODIUM
  4. CALCIUM [Concomitant]
     Active Substance: CALCIUM
  5. TYLENOL [Concomitant]
     Active Substance: ACETAMINOPHEN
  6. VITAMIN D [Concomitant]
     Active Substance: CHOLECALCIFEROL
  7. LUNESTA [Concomitant]
     Active Substance: ESZOPICLONE
  8. PROLIA [Suspect]
     Active Substance: DENOSUMAB
     Dosage: ABOUT 2 YRS AGO
  9. FOLTABS [Concomitant]

REACTIONS (4)
  - Throat irritation [None]
  - Headache [None]
  - Pruritus generalised [None]
  - Vulvovaginal pruritus [None]

NARRATIVE: CASE EVENT DATE: 20110712
